FAERS Safety Report 10232409 (Version 1)
Quarter: 2014Q2

REPORT INFORMATION
  Report Type: Report from Study
  Country: US (occurrence: US)
  Receive Date: 20140612
  Receipt Date: 20140612
  Transmission Date: 20141212
  Serious: Yes (Other)
  Sender: FDA-Public Use
  Company Number: US-ROCHE-1416782

PATIENT
  Sex: Female
  Weight: 104.42 kg

DRUGS (5)
  1. RITUXAN [Suspect]
     Indication: SJOGREN^S SYNDROME
     Dosage: 3 WEEKS AGO
     Route: 042
  2. RITUXAN [Suspect]
     Indication: NEUROMYELITIS OPTICA
     Dosage: 1 WEEK AGO
     Route: 042
  3. BISOPROLOL [Concomitant]
     Indication: HYPERTENSION
     Route: 048
  4. RESTORIL (UNITED STATES) [Concomitant]
     Indication: SLEEP DISORDER
     Route: 048
  5. SYNTHROID [Concomitant]
     Indication: THYROID DISORDER
     Route: 048

REACTIONS (4)
  - Muscular weakness [Not Recovered/Not Resolved]
  - Musculoskeletal stiffness [Not Recovered/Not Resolved]
  - Muscle tightness [Not Recovered/Not Resolved]
  - Muscle spasticity [Not Recovered/Not Resolved]
